FAERS Safety Report 10062010 (Version 3)
Quarter: 2014Q2

REPORT INFORMATION
  Report Type: Spontaneous
  Country: US (occurrence: US)
  Receive Date: 20140407
  Receipt Date: 20140510
  Transmission Date: 20141212
  Serious: Yes (Life-Threatening, Hospitalization, Other)
  Sender: FDA-Public Use
  Company Number: US-009507513-1404USA000001

PATIENT
  Age: 28 Year
  Sex: Female
  Weight: 77.98 kg

DRUGS (2)
  1. IMPLANON [Suspect]
     Dosage: 1 DF, UNK
     Route: 059
     Dates: start: 20120709
  2. INSULIN [Concomitant]

REACTIONS (4)
  - Pneumonia [Recovered/Resolved]
  - Deep vein thrombosis [Not Recovered/Not Resolved]
  - Thrombosis [Recovered/Resolved]
  - Medical device complication [Not Recovered/Not Resolved]
